FAERS Safety Report 20573750 (Version 4)
Quarter: 2022Q1

REPORT INFORMATION
  Report Type: Report from Study
  Country: None (occurrence: RU)
  Receive Date: 20220307
  Receipt Date: 20220317
  Transmission Date: 20220423
  Serious: No
  Sender: FDA-Public Use
  Company Number: RU-Celltrion, Inc.-2123307

PATIENT

DRUGS (1)
  1. TRUXIMA [Suspect]
     Active Substance: RITUXIMAB-ABBS

REACTIONS (1)
  - Colitis [None]
